FAERS Safety Report 8177983-X (Version None)
Quarter: 2012Q1

REPORT INFORMATION
  Report Type: 
  Country: None (occurrence: None)
  Receive Date: 20120130
  Receipt Date: 20110518
  Transmission Date: 20120608
  Serious: Yes (Hospitalization)
  Sender: FDA-Public Use
  Company Number: 033083

PATIENT
  Age: 19 Year
  Sex: Female

DRUGS (3)
  1. TOPAMAX [Concomitant]
  2. LEVETIRACETAM [Suspect]
     Indication: EPILEPSY
     Dosage: (3000 MG ORAL), (3000 MG, ORAL) (1500 MG ORAL)
     Route: 048
     Dates: start: 20100201, end: 20100101
  3. LEVETIRACETAM [Suspect]
     Indication: EPILEPSY
     Dosage: (3000 MG ORAL), (3000 MG, ORAL) (1500 MG ORAL)
     Route: 048
     Dates: start: 20100501, end: 20100501

REACTIONS (1)
  - HEADACHE [None]
